FAERS Safety Report 19550344 (Version 1)
Quarter: 2021Q3

REPORT INFORMATION
  Report Type: Other
  Country: US (occurrence: US)
  Receive Date: 20210714
  Receipt Date: 20210714
  Transmission Date: 20211014
  Serious: Yes (Other)
  Sender: FDA-Public Use
  Company Number: US-APOTEX-2021AP019529

PATIENT
  Age: 53 Year
  Sex: Male

DRUGS (2)
  1. ZANTAC [Suspect]
     Active Substance: RANITIDINE HYDROCHLORIDE
     Indication: DYSPEPSIA
     Dosage: OTHER (DAILY BUT SOMETIMES TWICE DAILY)
     Route: 065
     Dates: start: 199606, end: 200807
  2. RANITIDINE TABLETS [Suspect]
     Active Substance: RANITIDINE HYDROCHLORIDE
     Indication: DYSPEPSIA
     Dosage: OTHER (DAILY BUT SOMETIMES TWICE DAILY)
     Route: 065
     Dates: start: 200807, end: 201911

REACTIONS (3)
  - Prostate cancer [Not Recovered/Not Resolved]
  - Lip and/or oral cavity cancer [Unknown]
  - Skin cancer [Not Recovered/Not Resolved]

NARRATIVE: CASE EVENT DATE: 20090101
